FAERS Safety Report 7414956-6 (Version None)
Quarter: 2011Q2

REPORT INFORMATION
  Report Type: 
  Country: None (occurrence: None)
  Receive Date: 20110414
  Receipt Date: 20110412
  Transmission Date: 20111010
  Serious: Yes (Other)
  Sender: FDA-Public Use
  Company Number: BR-PFIZER INC-2011079435

PATIENT
  Sex: Female

DRUGS (3)
  1. DEPO-PROVERA [Suspect]
     Indication: OFF LABEL USE
     Dosage: UNK
     Route: 030
  2. DEPO-PROVERA [Suspect]
     Indication: MENORRHAGIA
  3. DEPO-PROVERA [Suspect]
     Indication: MIGRAINE

REACTIONS (2)
  - NON-SECRETORY ADENOMA OF PITUITARY [None]
  - AMENORRHOEA [None]
